FAERS Safety Report 13570819 (Version 7)
Quarter: 2021Q2

REPORT INFORMATION
  Report Type: Spontaneous
  Country: FR (occurrence: FR)
  Receive Date: 20170523
  Receipt Date: 20210416
  Transmission Date: 20210716
  Serious: Yes (Life-Threatening, Hospitalization, Other)
  Sender: FDA-Public Use
  Company Number: FR-009507513-1705FRA008684

PATIENT
  Age: 67 Year
  Sex: Male
  Weight: 102.7 kg

DRUGS (16)
  1. CUBICIN [Suspect]
     Active Substance: DAPTOMYCIN
     Dosage: CHANGED TO 800 MG, QOD (ODD DAYS)
     Route: 042
     Dates: start: 20170415, end: 20170425
  2. LASILIX [Suspect]
     Active Substance: FUROSEMIDE
     Indication: PRODUCT USED FOR UNKNOWN INDICATION
     Dosage: 250 MG, BID
     Route: 042
     Dates: start: 20170329, end: 20170425
  3. IMOVANE [Concomitant]
     Active Substance: ZOPICLONE
     Indication: PRODUCT USED FOR UNKNOWN INDICATION
     Dosage: 7.5 MILLIGRAM
     Route: 065
  4. CUBICIN [Suspect]
     Active Substance: DAPTOMYCIN
     Indication: ENDOCARDITIS BACTERIAL
     Dosage: 800 MG, QOD (ODD DAYS)
     Route: 042
     Dates: start: 20170330, end: 20170406
  5. RIFADIN [Suspect]
     Active Substance: RIFAMPIN
     Indication: STAPHYLOCOCCAL BACTERAEMIA
  6. BISOPROLOL [Concomitant]
     Active Substance: BISOPROLOL
     Indication: PRODUCT USED FOR UNKNOWN INDICATION
     Route: 065
  7. CUBICIN [Suspect]
     Active Substance: DAPTOMYCIN
     Indication: STAPHYLOCOCCAL BACTERAEMIA
     Dosage: INCREASED TO 1000 MG, QOD (ODD DAYS)
     Route: 042
     Dates: start: 20170407, end: 20170414
  8. KARDEGIC [Concomitant]
     Active Substance: ASPIRIN DL-LYSINE
     Indication: PRODUCT USED FOR UNKNOWN INDICATION
     Route: 065
  9. GENTAMICIN. [Concomitant]
     Active Substance: GENTAMICIN
     Indication: DEVICE RELATED INFECTION
     Dosage: UNK
     Route: 042
     Dates: start: 20170325
  10. GENTAMICIN. [Concomitant]
     Active Substance: GENTAMICIN
     Indication: STAPHYLOCOCCAL BACTERAEMIA
  11. RIFADIN [Suspect]
     Active Substance: RIFAMPIN
     Indication: ENDOCARDITIS BACTERIAL
     Dosage: 1200 MG/DAY
     Route: 048
     Dates: start: 20170407, end: 20170427
  12. VANCOMYCIN [Concomitant]
     Active Substance: VANCOMYCIN
     Indication: DEVICE RELATED INFECTION
     Dosage: UNK
     Route: 042
     Dates: start: 20170325, end: 20170330
  13. CALCIDOSE (CALCIUM CARBONATE) [Suspect]
     Active Substance: CALCIUM CARBONATE
     Indication: PRODUCT USED FOR UNKNOWN INDICATION
     Dosage: 2 DF, QD
     Route: 048
     Dates: start: 20170314, end: 20170425
  14. HEPARIN SODIUM. [Concomitant]
     Active Substance: HEPARIN SODIUM
     Indication: PRODUCT USED FOR UNKNOWN INDICATION
     Route: 065
  15. HUMALOG [Concomitant]
     Active Substance: INSULIN LISPRO
     Indication: PRODUCT USED FOR UNKNOWN INDICATION
     Route: 065
  16. VANCOMYCIN [Concomitant]
     Active Substance: VANCOMYCIN
     Indication: STAPHYLOCOCCAL BACTERAEMIA

REACTIONS (3)
  - Hallucination [Recovered/Resolved]
  - Prescribed overdose [Unknown]
  - Status epilepticus [Recovered/Resolved]

NARRATIVE: CASE EVENT DATE: 20170330
